FAERS Safety Report 15363471 (Version 8)
Quarter: 2019Q4

REPORT INFORMATION
  Report Type: Report from Study
  Country: US (occurrence: US)
  Receive Date: 20180907
  Receipt Date: 20191219
  Transmission Date: 20200122
  Serious: No
  Sender: FDA-Public Use
  Company Number: PHEH2018US037423

PATIENT
  Age: 47 Year
  Sex: Female

DRUGS (8)
  1. COSENTYX [Suspect]
     Active Substance: SECUKINUMAB
     Dosage: 300 MG, QMO
     Route: 058
     Dates: start: 20180515
  2. EPICERAM [Concomitant]
     Active Substance: DEVICE
     Indication: PSORIASIS
     Dosage: UNK UNK, QD
     Route: 061
  3. COSENTYX [Suspect]
     Active Substance: SECUKINUMAB
     Dosage: UNK
     Route: 058
     Dates: start: 201805
  4. LEVETIRACETAM. [Concomitant]
     Active Substance: LEVETIRACETAM
     Indication: SEIZURE
     Dosage: UNK UNK, QD
     Route: 048
  5. NOVOLOG [Concomitant]
     Active Substance: INSULIN ASPART
     Indication: DIABETES MELLITUS
     Dosage: UNK UNK, QD
     Route: 058
  6. TRESIBA [Concomitant]
     Active Substance: INSULIN DEGLUDEC
     Indication: DIABETES MELLITUS
     Dosage: UNK UNK, QD
     Route: 058
  7. SIMVASTATIN. [Concomitant]
     Active Substance: SIMVASTATIN
     Indication: MOYAMOYA DISEASE
     Dosage: UNK UNK, QD
     Route: 048
  8. COSENTYX [Suspect]
     Active Substance: SECUKINUMAB
     Indication: PSORIASIS
     Dosage: 300 MG, QMO
     Route: 058
     Dates: start: 20180514

REACTIONS (7)
  - Psoriasis [Unknown]
  - Pruritus [Unknown]
  - Product storage error [Unknown]
  - Cognitive disorder [Unknown]
  - Temperature intolerance [Unknown]
  - Therapeutic product effect decreased [Unknown]
  - Product dose omission [Unknown]

NARRATIVE: CASE EVENT DATE: 20181125
